FAERS Safety Report 19766320 (Version 1)
Quarter: 2021Q3

REPORT INFORMATION
  Report Type: Spontaneous
  Country: US (occurrence: US)
  Receive Date: 20210830
  Receipt Date: 20210830
  Transmission Date: 20211014
  Serious: No
  Sender: FDA-Public Use
  Company Number: None

PATIENT
  Age: 30 Year
  Sex: Female
  Weight: 70.31 kg

DRUGS (1)
  1. KYLEENA [Suspect]
     Active Substance: LEVONORGESTREL

REACTIONS (3)
  - Acne cystic [None]
  - Sensory disturbance [None]
  - Therapy non-responder [None]

NARRATIVE: CASE EVENT DATE: 20200801
